FAERS Safety Report 9559473 (Version 2)
Quarter: 2013Q4

REPORT INFORMATION
  Report Type: Spontaneous
  Country: TR (occurrence: TR)
  Receive Date: 20130927
  Receipt Date: 20131001
  Transmission Date: 20140711
  Serious: Yes (Other)
  Sender: FDA-Public Use
  Company Number: TR-JNJFOC-20130914441

PATIENT
  Sex: 0
  Weight: 80 kg

DRUGS (5)
  1. XARELTO [Suspect]
     Indication: KNEE ARTHROPLASTY
     Route: 048
     Dates: start: 20130917
  2. XARELTO [Suspect]
     Indication: THROMBOSIS PROPHYLAXIS
     Route: 048
     Dates: start: 20130917
  3. CEFALEXIN MONOHYDRATE [Concomitant]
     Route: 065
  4. LORNOXICAM [Concomitant]
     Route: 065
  5. PANTOPRAZOLE SODIUM [Concomitant]
     Route: 065

REACTIONS (2)
  - Ecchymosis [Recovering/Resolving]
  - Swelling [Recovering/Resolving]
